FAERS Safety Report 6020589-9 (Version None)
Quarter: 2008Q4

REPORT INFORMATION
  Report Type: 
  Country: None (occurrence: None)
  Receive Date: 20081227
  Receipt Date: 20081219
  Transmission Date: 20090506
  Serious: Yes (Hospitalization)
  Sender: FDA-Public Use
  Company Number: US-JNJFOC-20081205410

PATIENT
  Sex: Female
  Weight: 100.7 kg

DRUGS (5)
  1. FENTANYL TRANSDERMAL SYSTEM [Suspect]
     Route: 062
  2. FENTANYL TRANSDERMAL SYSTEM [Suspect]
     Indication: BACK PAIN
     Route: 062
  3. DURAGESIC-100 [Suspect]
     Route: 062
  4. DURAGESIC-100 [Suspect]
     Indication: BACK PAIN
     Route: 062
  5. PERCOCET [Concomitant]
     Indication: BREAKTHROUGH PAIN
     Dosage: DOSE= 10/325 MG
     Route: 048

REACTIONS (9)
  - ARTHRITIS [None]
  - BACK PAIN [None]
  - DEPRESSION [None]
  - DRUG ADMINISTERED AT INAPPROPRIATE SITE [None]
  - GASTROOESOPHAGEAL REFLUX DISEASE [None]
  - HYPERHIDROSIS [None]
  - INADEQUATE ANALGESIA [None]
  - RENAL CANCER [None]
  - WRONG TECHNIQUE IN DRUG USAGE PROCESS [None]
